FAERS Safety Report 7738561-7 (Version None)
Quarter: 2011Q3

REPORT INFORMATION
  Report Type: 
  Country: None (occurrence: None)
  Receive Date: 20110908
  Receipt Date: 20110830
  Transmission Date: 20111222
  Serious: Yes (Hospitalization)
  Sender: FDA-Public Use
  Company Number: US-ASTRAZENECA-2009UW06215

PATIENT
  Age: 52 Year
  Sex: Male

DRUGS (2)
  1. CYMBALTA [Concomitant]
  2. TOPROL-XL [Suspect]
     Route: 048
     Dates: start: 20090131

REACTIONS (8)
  - PYREXIA [None]
  - EMPHYSEMA [None]
  - BRONCHITIS CHRONIC [None]
  - CHRONIC OBSTRUCTIVE PULMONARY DISEASE [None]
  - MALAISE [None]
  - DEPRESSION [None]
  - VIRAL INFECTION [None]
  - HYPERTENSION [None]
